FAERS Safety Report 23257080 (Version 1)
Quarter: 2023Q4

REPORT INFORMATION
  Report Type: Other
  Country: None (occurrence: US)
  Receive Date: 20231204
  Receipt Date: 20231204
  Transmission Date: 20240110
  Serious: Yes (Other)
  Sender: FDA-Public Use
  Company Number: US-Appco Pharma LLC-2148956

PATIENT
  Age: 70 Year
  Sex: Female

DRUGS (4)
  1. ACETAZOLAMIDE [Suspect]
     Active Substance: ACETAZOLAMIDE
     Indication: Choroidal effusion
     Route: 048
  2. PREDNISONE [Suspect]
     Active Substance: PREDNISONE
     Route: 048
  3. DIFLUPREDNATE [Suspect]
     Active Substance: DIFLUPREDNATE
     Route: 061
  4. LATANOPROST [Suspect]
     Active Substance: LATANOPROST
     Route: 061

REACTIONS (3)
  - Malaise [Unknown]
  - Drug intolerance [Unknown]
  - Drug ineffective [Unknown]
